FAERS Safety Report 18582174 (Version 1)
Quarter: 2020Q4

REPORT INFORMATION
  Report Type: Spontaneous
  Country: TH (occurrence: TH)
  Receive Date: 20201205
  Receipt Date: 20201205
  Transmission Date: 20210114
  Serious: Yes (Hospitalization, Other)
  Sender: FDA-Public Use
  Company Number: TH-LUPIN PHARMACEUTICALS INC.-2020-09817

PATIENT
  Age: 12 Year
  Sex: Female

DRUGS (18)
  1. ACICLOVIR [Concomitant]
     Active Substance: ACYCLOVIR
     Indication: PRODUCT USED FOR UNKNOWN INDICATION
     Dosage: UNK
     Route: 065
     Dates: start: 201908
  2. MEROPENEM. [Concomitant]
     Active Substance: MEROPENEM
     Indication: PSEUDOMONAS INFECTION
     Dosage: 120 MILLIGRAM/KILOGRAM, QD
     Route: 065
     Dates: start: 2019
  3. RISPERIDONE. [Suspect]
     Active Substance: RISPERIDONE
     Indication: ENCEPHALITIS
     Dosage: UNK
     Route: 065
     Dates: start: 201908
  4. OCTREOTIDE. [Suspect]
     Active Substance: OCTREOTIDE
     Indication: DIARRHOEA
     Dosage: 1 MICROGRAM/KILOGRAM
     Route: 065
     Dates: start: 20191024, end: 20191026
  5. PHENYTOIN SODIUM. [Suspect]
     Active Substance: PHENYTOIN SODIUM
     Indication: ENCEPHALITIS
     Dosage: UNK
     Route: 065
     Dates: start: 201908
  6. IMMUNOGLOBULIN [IMMUNOGLOBULINS NOS] [Suspect]
     Active Substance: IMMUNE GLOBULIN NOS
     Dosage: 0.4 G/KG/DAY
     Route: 042
     Dates: start: 20191004, end: 20191008
  7. CEFTRIAXONE. [Concomitant]
     Active Substance: CEFTRIAXONE
     Indication: PRODUCT USED FOR UNKNOWN INDICATION
     Dosage: UNK
     Route: 065
     Dates: start: 201908
  8. OMEPRAZOLE. [Concomitant]
     Active Substance: OMEPRAZOLE
     Indication: VOMITING
     Dosage: 80 MILLIGRAM, QD
     Route: 065
     Dates: start: 2019
  9. AZITHROMYCIN ANHYDROUS. [Concomitant]
     Active Substance: AZITHROMYCIN ANHYDROUS
     Indication: PRODUCT USED FOR UNKNOWN INDICATION
     Dosage: UNK
     Route: 065
     Dates: start: 201908
  10. FEXOFENADINE [Concomitant]
     Active Substance: FEXOFENADINE HYDROCHLORIDE
     Indication: PRODUCT USED FOR UNKNOWN INDICATION
     Dosage: UNK
     Route: 065
     Dates: start: 201908
  11. METHYLPREDNISOLONE. [Suspect]
     Active Substance: METHYLPREDNISOLONE
     Indication: ENCEPHALITIS
     Dosage: 10 MILLIGRAM/KILOGRAM, QD
     Route: 065
     Dates: start: 20190823, end: 20190826
  12. IMMUNOGLOBULIN [IMMUNOGLOBULINS NOS] [Suspect]
     Active Substance: IMMUNE GLOBULIN NOS
     Indication: ENCEPHALITIS
     Dosage: 2G/KG DIVIDED INTO 5 DAYS
     Route: 042
     Dates: start: 20190828, end: 20190903
  13. ATROPINE. [Concomitant]
     Active Substance: ATROPINE
     Indication: DROOLING
     Dosage: UNK
     Route: 065
     Dates: start: 2019
  14. ROXITHROMYCIN [Concomitant]
     Active Substance: ROXITHROMYCIN
     Indication: PRODUCT USED FOR UNKNOWN INDICATION
     Dosage: UNK
     Route: 065
     Dates: start: 201908
  15. CHOLESTYRAMINE. [Suspect]
     Active Substance: CHOLESTYRAMINE
     Indication: DIARRHOEA
     Dosage: 80 MILLIGRAM/KILOGRAM, TID
     Route: 065
     Dates: start: 20191019, end: 20191024
  16. OSELTAMIVIR [Concomitant]
     Active Substance: OSELTAMIVIR
     Indication: PRODUCT USED FOR UNKNOWN INDICATION
     Dosage: UNK
     Route: 065
     Dates: start: 201908
  17. PREDNISOLONE. [Suspect]
     Active Substance: PREDNISOLONE
     Indication: ENCEPHALITIS
     Dosage: 1.2 MILLIGRAM/KILOGRAM, QD
     Route: 065
     Dates: start: 20190827
  18. PARACETAMOL [Concomitant]
     Active Substance: ACETAMINOPHEN
     Indication: PRODUCT USED FOR UNKNOWN INDICATION
     Dosage: UNK
     Route: 065
     Dates: start: 201908

REACTIONS (5)
  - Sepsis [Recovered/Resolved]
  - Pseudomonas infection [Recovered/Resolved]
  - Drug ineffective [Unknown]
  - Cytomegalovirus colitis [Recovered/Resolved]
  - Cytomegalovirus gastroenteritis [Recovered/Resolved]

NARRATIVE: CASE EVENT DATE: 2019
